FAERS Safety Report 24681556 (Version 1)
Quarter: 2024Q4

REPORT INFORMATION
  Report Type: Report from Study
  Country: US (occurrence: None)
  Receive Date: 20241130
  Receipt Date: 20241130
  Transmission Date: 20250114
  Serious: Yes (Other)
  Sender: ALEXION PHARMACEUTICALS
  Company Number: US-AstraZeneca-CH-00754132A

PATIENT

DRUGS (8)
  1. DAPAGLIFLOZIN [Suspect]
     Active Substance: DAPAGLIFLOZIN
  2. DAPAGLIFLOZIN [Suspect]
     Active Substance: DAPAGLIFLOZIN
  3. DAPAGLIFLOZIN [Suspect]
     Active Substance: DAPAGLIFLOZIN
  4. DAPAGLIFLOZIN [Suspect]
     Active Substance: DAPAGLIFLOZIN
  5. TICAGRELOR [Suspect]
     Active Substance: TICAGRELOR
  6. TICAGRELOR [Suspect]
     Active Substance: TICAGRELOR
  7. TICAGRELOR [Suspect]
     Active Substance: TICAGRELOR
  8. TICAGRELOR [Suspect]
     Active Substance: TICAGRELOR

REACTIONS (1)
  - Cerebrovascular accident [Unknown]
